FAERS Safety Report 22260680 (Version 1)
Quarter: 2023Q2

REPORT INFORMATION
  Report Type: Spontaneous
  Country: US (occurrence: None)
  Receive Date: 20230425
  Receipt Date: 20230425
  Transmission Date: 20230722
  Serious: Yes (Death)
  Sender: FDA-Public Use
  Company Number: None

PATIENT
  Age: 69 Year
  Sex: Male
  Weight: 104.33 kg

DRUGS (14)
  1. TEMOZOLOMIDE [Suspect]
     Active Substance: TEMOZOLOMIDE
     Indication: Brain neoplasm malignant
     Dosage: 300MG DAILY ORAL??
     Route: 048
  2. GRANISETRON [Suspect]
     Active Substance: GRANISETRON
     Indication: Brain neoplasm malignant
     Dosage: 1MG DAILY ORAL?
     Route: 048
  3. BACTRIM DS [Concomitant]
     Active Substance: SULFAMETHOXAZOLE\TRIMETHOPRIM
  4. MAGNESIUM [Concomitant]
  5. DEXAMETHASONE [Concomitant]
  6. LEVETIRACETAM [Concomitant]
     Active Substance: LEVETIRACETAM
  7. LOVENOX [Concomitant]
     Active Substance: ENOXAPARIN SODIUM
  8. MULTI VITAMIN [Concomitant]
  9. ONDANSETRON [Concomitant]
  10. PEPCID [Concomitant]
     Active Substance: FAMOTIDINE
  11. TAMSULOSIN [Concomitant]
  12. TRIPLE OMEGA 3-6-9 [Concomitant]
  13. TYLENOL [Concomitant]
  14. XARELTO [Concomitant]
     Active Substance: RIVAROXABAN

REACTIONS (1)
  - Death [None]

NARRATIVE: CASE EVENT DATE: 20230422
